FAERS Safety Report 23848251 (Version 1)
Quarter: 2024Q2

REPORT INFORMATION
  Report Type: Spontaneous
  Country: CN (occurrence: CN)
  Receive Date: 20240513
  Receipt Date: 20240513
  Transmission Date: 20240716
  Serious: Yes (Hospitalization, Disabling)
  Sender: FDA-Public Use
  Company Number: CN-PFIZER INC-PV202400061441

PATIENT
  Age: 60 Year
  Sex: Female
  Weight: 79.2 kg

DRUGS (2)
  1. EXEMESTANE [Suspect]
     Active Substance: EXEMESTANE
     Indication: Breast cancer
     Dosage: 20 MG, 1X/DAY
     Route: 048
     Dates: start: 20240307, end: 20240506
  2. ABEMACICLIB [Suspect]
     Active Substance: ABEMACICLIB
     Indication: Breast cancer
     Dosage: 150 MG, 1X/DAY
     Route: 048
     Dates: start: 20240307, end: 20240506

REACTIONS (2)
  - Liver injury [Recovering/Resolving]
  - White blood cell count decreased [Recovering/Resolving]

NARRATIVE: CASE EVENT DATE: 20240430
